FAERS Safety Report 11058287 (Version 1)
Quarter: 2015Q2

REPORT INFORMATION
  Report Type: Spontaneous
  Country: US (occurrence: None)
  Receive Date: 20150420
  Receipt Date: 20150420
  Transmission Date: 20150821
  Serious: No
  Sender: FDA-Public Use
  Company Number: AEGR001155

PATIENT
  Age: 60 Year
  Sex: Female
  Weight: 92.5 kg

DRUGS (14)
  1. NORVASC [Concomitant]
     Active Substance: AMLODIPINE BESYLATE
  2. METFORMIN [Concomitant]
     Active Substance: METFORMIN HYDROCHLORIDE
  3. VITAMIN E (TOCOPHERYL ACETATE) [Concomitant]
  4. FENOFIBRATE (FENOFIBRATE) [Concomitant]
     Active Substance: FENOFIBRATE
  5. METOPROLOL TARTRATE (METOPROLOL TARTRATE) [Concomitant]
  6. ASPIRIN (ACETYLSALICYLIC ACID) [Concomitant]
     Active Substance: ASPIRIN
  7. KLOR-CON (POTASSIUIM CHLORIDE) [Concomitant]
  8. HYDROCHLOROTHIAZIDE  (HYDROCHLOROTHIAZIDE) [Concomitant]
     Active Substance: HYDROCHLOROTHIAZIDE
  9. JUXTAPID [Suspect]
     Active Substance: LOMITAPIDE MESYLATE
     Indication: TYPE IIA HYPERLIPIDAEMIA
     Route: 048
  10. AMITRIPTYLINE (AMITRIPTYLINE) [Concomitant]
     Active Substance: AMITRIPTYLINE
  11. WELCHOL (COLESEVELAM HYDROCHLORIDE) [Concomitant]
  12. CELEBREX [Concomitant]
     Active Substance: CELECOXIB
  13. ADVAIR DISKUS [Concomitant]
     Active Substance: FLUTICASONE PROPIONATE\SALMETEROL XINAFOATE
  14. CRESTOR [Concomitant]
     Active Substance: ROSUVASTATIN CALCIUM

REACTIONS (3)
  - Inappropriate schedule of drug administration [None]
  - Liver function test abnormal [None]
  - Diarrhoea [None]

NARRATIVE: CASE EVENT DATE: 201410
